FAERS Safety Report 15720686 (Version 1)
Quarter: 2018Q4

REPORT INFORMATION
  Report Type: Spontaneous
  Country: US (occurrence: US)
  Receive Date: 20181213
  Receipt Date: 20181213
  Transmission Date: 20190205
  Serious: No
  Sender: FDA-Public Use
  Company Number: US-BIOGEN-2018BI00671087

PATIENT
  Sex: Female

DRUGS (1)
  1. AVONEX [Suspect]
     Active Substance: INTERFERON BETA-1A
     Indication: MULTIPLE SCLEROSIS
     Route: 065
     Dates: start: 20110712

REACTIONS (5)
  - Fatigue [Unknown]
  - Malaise [Unknown]
  - Drug intolerance [Unknown]
  - Feeling abnormal [Unknown]
  - Irritable bowel syndrome [Not Recovered/Not Resolved]
